FAERS Safety Report 13089602 (Version 2)
Quarter: 2017Q1

REPORT INFORMATION
  Report Type: Spontaneous
  Country: BE (occurrence: BE)
  Receive Date: 20170105
  Receipt Date: 20170117
  Transmission Date: 20170428
  Serious: Yes (Life-Threatening, Hospitalization, Other)
  Sender: FDA-Public Use
  Company Number: BE-PFIZER INC-2017001663

PATIENT
  Age: 81 Year
  Sex: Female
  Weight: 72.5 kg

DRUGS (10)
  1. CLEXANE [Concomitant]
     Active Substance: ENOXAPARIN SODIUM
     Indication: ANTICOAGULANT THERAPY
     Dosage: UNK
     Dates: start: 20161220
  2. LYRICA [Suspect]
     Active Substance: PREGABALIN
     Indication: NEURALGIA
     Dosage: 25 MG, THREE TIMES A DAY (TWICE IN THE MORNING AND ONCE IN THE EVENING)
     Route: 048
     Dates: start: 20161207, end: 20161216
  3. ALDACTONE [Concomitant]
     Active Substance: SPIRONOLACTONE
     Indication: PULMONARY CONGESTION
  4. SOTALEX [Concomitant]
     Active Substance: SOTALOL
     Dosage: 40 MG, TWICE A DAY
     Route: 048
     Dates: start: 20140620
  5. BURINEX [Concomitant]
     Active Substance: BUMETANIDE
     Indication: OEDEMA PERIPHERAL
     Dosage: UNK
  6. ALDACTONE [Concomitant]
     Active Substance: SPIRONOLACTONE
     Indication: OEDEMA PERIPHERAL
     Dosage: UNK
  7. BURINEX [Concomitant]
     Active Substance: BUMETANIDE
     Indication: PULMONARY CONGESTION
  8. PRADAXA [Concomitant]
     Active Substance: DABIGATRAN ETEXILATE MESYLATE
     Dosage: 110 MG, TWICE A DAY
     Dates: start: 20140620
  9. MAGNETOP [Concomitant]
     Dosage: UNK
     Dates: start: 201612
  10. LANOXIN [Concomitant]
     Active Substance: DIGOXIN
     Indication: HEART RATE ABNORMAL
     Dosage: UNK

REACTIONS (3)
  - Atrial fibrillation [Recovered/Resolved]
  - Acute kidney injury [Recovered/Resolved]
  - Iron deficiency [Unknown]

NARRATIVE: CASE EVENT DATE: 20161216
